FAERS Safety Report 16460923 (Version 1)
Quarter: 2019Q2

REPORT INFORMATION
  Report Type: Spontaneous
  Country: JP (occurrence: JP)
  Receive Date: 20190620
  Receipt Date: 20190620
  Transmission Date: 20190711
  Serious: Yes (Other)
  Sender: FDA-Public Use
  Company Number: PHHY2019JP139027

PATIENT
  Age: 54 Year
  Sex: Female

DRUGS (1)
  1. ETANERCEPT [Suspect]
     Active Substance: ETANERCEPT
     Indication: RHEUMATOID ARTHRITIS
     Route: 065

REACTIONS (5)
  - Sarcoidosis [Recovering/Resolving]
  - Iritis [Unknown]
  - Propionibacterium infection [Unknown]
  - Conjunctival hyperaemia [Unknown]
  - Hilar lymphadenopathy [Unknown]
